FAERS Safety Report 16083790 (Version 1)
Quarter: 2019Q1

REPORT INFORMATION
  Report Type: Spontaneous
  Country: US (occurrence: US)
  Receive Date: 20190214
  Receipt Date: 20190214
  Transmission Date: 20190418
  Serious: Yes (Hospitalization)
  Sender: FDA-Public Use
  Company Number: None

PATIENT
  Age: 55 Year
  Sex: Male

DRUGS (28)
  1. GLATIRAMER [Suspect]
     Active Substance: GLATIRAMER
     Indication: MULTIPLE SCLEROSIS
  2. BENZONATATE. [Concomitant]
     Active Substance: BENZONATATE
  3. LISINOPRIL. [Concomitant]
     Active Substance: LISINOPRIL
  4. CLONAZEPAM. [Concomitant]
     Active Substance: CLONAZEPAM
  5. GABAPENTIN. [Concomitant]
     Active Substance: GABAPENTIN
  6. TRAZODONE [Concomitant]
     Active Substance: TRAZODONE HYDROCHLORIDE
  7. NOFOLOT [Concomitant]
  8. FLUTICASONE. [Concomitant]
     Active Substance: FLUTICASONE
  9. SERTRALINE [Concomitant]
     Active Substance: SERTRALINE HYDROCHLORIDE
  10. OMEPRAZOLE. [Concomitant]
     Active Substance: OMEPRAZOLE
  11. NEURONTIN [Concomitant]
     Active Substance: GABAPENTIN
  12. DULOXETINE. [Concomitant]
     Active Substance: DULOXETINE
  13. METFORMIN [Concomitant]
     Active Substance: METFORMIN HYDROCHLORIDE
  14. MELOXICAM. [Concomitant]
     Active Substance: MELOXICAM
  15. AMOXICILLIN. [Concomitant]
     Active Substance: AMOXICILLIN
  16. BACLOFEN. [Concomitant]
     Active Substance: BACLOFEN
  17. WAL-DRAM [Concomitant]
     Active Substance: DIMENHYDRINATE
  18. PREDNISONE. [Concomitant]
     Active Substance: PREDNISONE
  19. METHYLPREDNISOLONE. [Concomitant]
     Active Substance: METHYLPREDNISOLONE
  20. HCTZ [Concomitant]
     Active Substance: HYDROCHLOROTHIAZIDE
  21. DIAZEPAM. [Concomitant]
     Active Substance: DIAZEPAM
  22. ZOFRAN [Concomitant]
     Active Substance: ONDANSETRON HYDROCHLORIDE
  23. NUEDEXTA [Concomitant]
     Active Substance: DEXTROMETHORPHAN HYDROBROMIDE\QUINIDINE SULFATE
  24. NORCO [Concomitant]
     Active Substance: ACETAMINOPHEN\HYDROCODONE BITARTRATE
  25. INDOMETHACIN. [Concomitant]
     Active Substance: INDOMETHACIN
  26. DOXYCYCLINE. [Concomitant]
     Active Substance: DOXYCYCLINE
  27. ATORVASTATIN [Concomitant]
     Active Substance: ATORVASTATIN
  28. VITAMIN D3 [Concomitant]
     Active Substance: CHOLECALCIFEROL

REACTIONS (5)
  - Fatigue [None]
  - Visual impairment [None]
  - Mobility decreased [None]
  - Fall [None]
  - Disease recurrence [None]

NARRATIVE: CASE EVENT DATE: 20190213
